FAERS Safety Report 6166533-5 (Version None)
Quarter: 2009Q2

REPORT INFORMATION
  Report Type: 
  Country: None (occurrence: None)
  Receive Date: 20090424
  Receipt Date: 20090414
  Transmission Date: 20091009
  Serious: Yes (Other)
  Sender: FDA-Public Use
  Company Number: US-ELI_LILLY_AND_COMPANY-US200805005695

PATIENT
  Sex: Female

DRUGS (1)
  1. FORTEO [Suspect]
     Indication: CLAVICLE FRACTURE
     Dosage: 20 UG, DAILY (1/D)
     Dates: start: 20070501, end: 20080526

REACTIONS (3)
  - ABORTION SPONTANEOUS [None]
  - DRUG EXPOSURE DURING PREGNANCY [None]
  - VAGINAL HAEMORRHAGE [None]
